FAERS Safety Report 14641598 (Version 1)
Quarter: 2018Q1

REPORT INFORMATION
  Report Type: Spontaneous
  Country: DE (occurrence: DE)
  Receive Date: 20180315
  Receipt Date: 20180315
  Transmission Date: 20180509
  Serious: Yes (Death, Hospitalization, Other)
  Sender: FDA-Public Use
  Company Number: DE-IPSEN BIOPHARMACEUTICALS, INC.-2018-03820

PATIENT
  Sex: Male
  Weight: 73 kg

DRUGS (17)
  1. AVASTIN [Suspect]
     Active Substance: BEVACIZUMAB
     Route: 042
     Dates: start: 20160317
  2. 5-FLUOROURACIL [Suspect]
     Active Substance: FLUOROURACIL
     Indication: COLORECTAL CANCER METASTATIC
     Route: 042
     Dates: start: 20141113, end: 20150608
  3. L-THYROXIN [Concomitant]
     Active Substance: LEVOTHYROXINE SODIUM
  4. PEGYLATED LIPOSOMAL IRINOTECAN [Suspect]
     Active Substance: IRINOTECAN HYDROCHLORIDE
     Dosage: 50 MG/M2
     Route: 042
     Dates: start: 20151125
  5. AVASTIN [Suspect]
     Active Substance: BEVACIZUMAB
     Route: 042
     Dates: start: 20151214
  6. ASS LIGHT 100 [Concomitant]
  7. TAMSUBLOCK [Concomitant]
     Active Substance: TAMSULOSIN HYDROCHLORIDE
     Dates: start: 20141111
  8. 5-FLUOROURACIL [Suspect]
     Active Substance: FLUOROURACIL
     Route: 041
     Dates: start: 20151125
  9. OXALIPLATIN. [Suspect]
     Active Substance: OXALIPLATIN
     Indication: COLORECTAL CANCER METASTATIC
     Route: 042
     Dates: start: 20150324, end: 20150608
  10. PEGYLATED LIPOSOMAL IRINOTECAN [Suspect]
     Active Substance: IRINOTECAN HYDROCHLORIDE
     Indication: PRODUCT USED FOR UNKNOWN INDICATION
     Dosage: 136 MG
     Route: 042
     Dates: start: 20150924, end: 20151029
  11. MONO-EMBOLEX [Concomitant]
     Active Substance: CERTOPARIN SODIUM
     Dates: start: 20141104
  12. FOLINIC ACID [Suspect]
     Active Substance: LEUCOVORIN
     Indication: COLORECTAL CANCER METASTATIC
     Route: 042
     Dates: start: 20141113, end: 20150608
  13. FOLINIC ACID [Suspect]
     Active Substance: LEUCOVORIN
     Route: 042
     Dates: start: 20151125
  14. AVASTIN [Suspect]
     Active Substance: BEVACIZUMAB
     Indication: COLORECTAL CANCER METASTATIC
     Route: 042
     Dates: start: 20141127, end: 20151022
  15. CITALOPRAM [Concomitant]
     Active Substance: CITALOPRAM HYDROBROMIDE
     Dates: start: 20150623
  16. BISOPROLOL [Concomitant]
     Active Substance: BISOPROLOL
     Dates: start: 20151022
  17. AVASTIN [Suspect]
     Active Substance: BEVACIZUMAB
     Route: 042
     Dates: start: 20160415

REACTIONS (25)
  - Klebsiella bacteraemia [Recovered/Resolved]
  - Fatigue [Recovered/Resolved]
  - Tachycardia [Recovered/Resolved]
  - Ascites [Recovered/Resolved]
  - Anaemia of malignant disease [Recovered/Resolved]
  - Systemic inflammatory response syndrome [Recovered/Resolved]
  - General physical health deterioration [Recovered/Resolved]
  - Hypertension [Recovered/Resolved]
  - Diarrhoea [Recovered/Resolved]
  - Chills [Recovered/Resolved]
  - Syncope [Recovered/Resolved]
  - Salivary hypersecretion [Recovered/Resolved]
  - Tachycardia [Recovered/Resolved]
  - Metastases to liver [Recovered/Resolved]
  - Cholestasis [Recovered/Resolved]
  - Proteinuria [Recovered/Resolved]
  - Diarrhoea [Recovered/Resolved]
  - Atrial flutter [Recovered/Resolved]
  - Polyneuropathy [Recovered/Resolved]
  - Dizziness [Recovered/Resolved]
  - Malignant neoplasm progression [Fatal]
  - Fatigue [Recovered/Resolved]
  - Abdominal pain [Recovered/Resolved]
  - Circulatory collapse [Recovered/Resolved]
  - Cachexia [Recovered/Resolved]

NARRATIVE: CASE EVENT DATE: 20150924
